FAERS Safety Report 11174741 (Version 4)
Quarter: 2015Q3

REPORT INFORMATION
  Report Type: Report from Study
  Country: US (occurrence: US)
  Receive Date: 20150609
  Receipt Date: 20150924
  Transmission Date: 20151125
  Serious: Yes (Other)
  Sender: FDA-Public Use
  Company Number: US-ALEXION-A201502025

PATIENT

DRUGS (1)
  1. SOLIRIS [Suspect]
     Active Substance: ECULIZUMAB
     Indication: HAEMOLYTIC URAEMIC SYNDROME
     Dosage: UNK
     Route: 042

REACTIONS (9)
  - Platelet count decreased [Unknown]
  - Blood pressure abnormal [Recovering/Resolving]
  - Depression [Unknown]
  - Blood creatinine increased [Not Recovered/Not Resolved]
  - Oedema [Recovered/Resolved]
  - Vessel puncture site thrombosis [Unknown]
  - Visual impairment [Recovering/Resolving]
  - Fatigue [Unknown]
  - Thrombosis [Unknown]

NARRATIVE: CASE EVENT DATE: 20150511
